FAERS Safety Report 10068529 (Version 2)
Quarter: 2014Q2

REPORT INFORMATION
  Report Type: Report from Study
  Country: DE (occurrence: DE)
  Receive Date: 20140409
  Receipt Date: 20140421
  Transmission Date: 20141212
  Serious: Yes (Hospitalization)
  Sender: FDA-Public Use
  Company Number: DE-NAPPMUNDI-DEU-2014-0014138

PATIENT
  Sex: Female

DRUGS (7)
  1. HYDROMORPHONE HCL PR CAPSULE 8 MG [Suspect]
     Indication: ARTHRALGIA
     Dosage: 8 MG, DAILY
     Route: 048
     Dates: start: 201302
  2. ARCOXIA [Concomitant]
     Dosage: 90 MG, DAILY
     Route: 048
  3. DOXEPIN [Concomitant]
     Dosage: 25 MG, BID
     Route: 048
  4. METAMIZOL                          /06276702/ [Concomitant]
     Dosage: 4000 MG, DAILY
     Route: 048
  5. PANTOPRAZOLE [Concomitant]
     Dosage: 40 MG, DAILY
     Route: 048
  6. ZOPICLON [Concomitant]
     Dosage: 7 MG, DAILY
     Route: 048
  7. PANTOZOL                           /01263204/ [Concomitant]
     Dosage: UNK UNK, DAILY

REACTIONS (5)
  - Disturbance in attention [Not Recovered/Not Resolved]
  - Fall [Unknown]
  - Fracture [Not Recovered/Not Resolved]
  - Fatigue [Unknown]
  - Chills [Unknown]
